FAERS Safety Report 18820580 (Version 2)
Quarter: 2021Q1

REPORT INFORMATION
  Report Type: Report from Study
  Country: CO (occurrence: CO)
  Receive Date: 20210202
  Receipt Date: 20210222
  Transmission Date: 20210419
  Serious: Yes (Hospitalization)
  Sender: FDA-Public Use
  Company Number: CO-BAYER-2020-230737

PATIENT
  Age: 32 Year
  Sex: Female

DRUGS (3)
  1. BETAFERON [Suspect]
     Active Substance: INTERFERON BETA-1B
     Indication: MULTIPLE SCLEROSIS
     Dosage: 1 DF, QOD
     Dates: start: 20170929
  2. BETAFERON [Suspect]
     Active Substance: INTERFERON BETA-1B
     Indication: MULTIPLE SCLEROSIS
     Dosage: 1 DF QOD
  3. BETAFERON [Suspect]
     Active Substance: INTERFERON BETA-1B
     Indication: MULTIPLE SCLEROSIS
     Dosage: 1 DF QOD

REACTIONS (5)
  - Vaginal haemorrhage [None]
  - Nephrolithiasis [Recovered/Resolved]
  - Maternal exposure during pregnancy [None]
  - Abortion spontaneous [None]
  - Rectal abscess [Recovered/Resolved]

NARRATIVE: CASE EVENT DATE: 20200918
